FAERS Safety Report 20543180 (Version 1)
Quarter: 2022Q1

REPORT INFORMATION
  Report Type: Spontaneous
  Country: US (occurrence: None)
  Receive Date: 20220302
  Receipt Date: 20220302
  Transmission Date: 20220423
  Serious: No
  Sender: FDA-Public Use
  Company Number: US-ROCHE-2820684

PATIENT
  Sex: Female
  Weight: 58 kg

DRUGS (4)
  1. NUTROPIN [Suspect]
     Active Substance: SOMATROPIN
     Indication: Short stature
     Dosage: STRENGTH 10 MG/2 ML
     Route: 058
     Dates: start: 20161228
  2. NUTROPIN [Suspect]
     Active Substance: SOMATROPIN
  3. ESTRACE [Concomitant]
     Active Substance: ESTRADIOL
     Route: 048
  4. PROVERA [Concomitant]
     Active Substance: MEDROXYPROGESTERONE ACETATE

REACTIONS (1)
  - Joint dislocation [Unknown]
